FAERS Safety Report 10080332 (Version 1)
Quarter: 2014Q2

REPORT INFORMATION
  Report Type: Report from Study
  Country: CA (occurrence: CA)
  Receive Date: 20140415
  Receipt Date: 20140415
  Transmission Date: 20141212
  Serious: Yes (Death)
  Sender: FDA-Public Use
  Company Number: CA-US-EMD SERONO, INC.-7281199

PATIENT
  Sex: Female

DRUGS (1)
  1. REBIF [Suspect]
     Indication: SECONDARY PROGRESSIVE MULTIPLE SCLEROSIS

REACTIONS (4)
  - Neoplasm malignant [Fatal]
  - Multiple sclerosis relapse [Fatal]
  - Off label use [Unknown]
  - Drug ineffective for unapproved indication [Unknown]
